FAERS Safety Report 9494012 (Version 1)
Quarter: 2013Q3

REPORT INFORMATION
  Report Type: Spontaneous
  Country: NL (occurrence: NL)
  Receive Date: 20130903
  Receipt Date: 20130903
  Transmission Date: 20140515
  Serious: Yes (Other)
  Sender: FDA-Public Use
  Company Number: NL-BRISTOL-MYERS SQUIBB COMPANY-19218155

PATIENT
  Age: 66 Year
  Sex: Male
  Weight: 80 kg

DRUGS (2)
  1. PRAVASTATIN SODIUM [Suspect]
     Indication: HYPERCHOLESTEROLAEMIA
     Dosage: TABS
     Dates: start: 20130701, end: 20130808
  2. MICARDIS [Concomitant]
     Dosage: TABS
     Dates: start: 201303

REACTIONS (1)
  - Tendon rupture [Not Recovered/Not Resolved]
